FAERS Safety Report 5231965-6 (Version None)
Quarter: 2007Q1

REPORT INFORMATION
  Report Type: 
  Country: None (occurrence: None)
  Receive Date: 20070206
  Receipt Date: 20070125
  Transmission Date: 20070707
  Serious: Yes (Other)
  Sender: FDA-Public Use
  Company Number: US-PFIZER INC-2007007258

PATIENT
  Age: 60 Year
  Sex: Male

DRUGS (5)
  1. AMLODIPINE [Suspect]
     Dosage: DAILY DOSE:20MG
  2. METOPROLOL SUCCINATE [Suspect]
  3. METOPROLOL SUCCINATE [Suspect]
  4. HYDROCHLOROTHIAZIDE [Suspect]
  5. VALSARTAN [Suspect]

REACTIONS (3)
  - PRESYNCOPE [None]
  - SINUS ARREST [None]
  - SYNCOPE [None]
